FAERS Safety Report 8815743 (Version 6)
Quarter: 2014Q3

REPORT INFORMATION
  Report Type: Spontaneous
  Country: US (occurrence: US)
  Receive Date: 20120928
  Receipt Date: 20140712
  Transmission Date: 20150326
  Serious: Yes (Hospitalization, Other)
  Sender: FDA-Public Use
  Company Number: US-MERCK-1209USA010889

PATIENT
  Sex: Female
  Weight: 78.5 kg

DRUGS (4)
  1. FOSAMAX [Suspect]
     Active Substance: ALENDRONATE SODIUM
     Indication: OSTEOPENIA
     Dosage: 10 MG, QD 1/2 HOUR BEFORE FIRST FOOD OF DAY
     Route: 048
     Dates: start: 20030521
  2. FOSAMAX [Suspect]
     Active Substance: ALENDRONATE SODIUM
     Dosage: 70 MG, QW ON SATURDAYS 1/2 HOUR BEFORE FIRST MEAL OF DAY
     Route: 048
     Dates: start: 20030619, end: 200505
  3. CALCIUM (UNSPECIFIED) [Concomitant]
     Active Substance: CALCIUM
     Dosage: UNK UNK, QD
     Dates: start: 1995
  4. VITAMINS (UNSPECIFIED) [Concomitant]
     Active Substance: VITAMINS
     Dosage: UNK, QD
     Dates: start: 1995

REACTIONS (23)
  - Affective disorder [Unknown]
  - Temporomandibular joint syndrome [Unknown]
  - Dermatitis contact [Recovering/Resolving]
  - Menopausal symptoms [Unknown]
  - Raynaud^s phenomenon [Unknown]
  - Depression [Unknown]
  - Pain in extremity [Unknown]
  - Pain in extremity [Unknown]
  - Thirst [Unknown]
  - Anaemia [Unknown]
  - Hypertension [Unknown]
  - Osteoporosis [Unknown]
  - Back pain [Unknown]
  - Pain in extremity [Unknown]
  - Constipation [Unknown]
  - Palpitations [Unknown]
  - Anxiety [Unknown]
  - Intramedullary rod insertion [Unknown]
  - Pollakiuria [Unknown]
  - Osteoarthritis [Unknown]
  - Femur fracture [Recovered/Resolved]
  - Nasopharyngitis [Recovering/Resolving]
  - Plantar fasciitis [Unknown]

NARRATIVE: CASE EVENT DATE: 20030922
